FAERS Safety Report 5024847-6 (Version None)
Quarter: 2006Q2

REPORT INFORMATION
  Report Type: 
  Country: None (occurrence: None)
  Receive Date: 20060607
  Receipt Date: 20060529
  Transmission Date: 20061013
  Serious: Yes (Hospitalization, Other)
  Sender: FDA-Public Use
  Company Number: HQWYE696607FEB06

PATIENT
  Age: 54 Year
  Sex: Male

DRUGS (7)
  1. RAPAMUNE [Suspect]
     Indication: PROPHYLAXIS AGAINST TRANSPLANT REJECTION
     Dosage: 2 MG 1X PER 1 DAY ORAL
     Route: 048
     Dates: start: 20051111, end: 20060126
  2. CELLCEPT [Concomitant]
  3. METHYLPREDNISOLONE [Concomitant]
  4. SULFAMETHOXAZOLE + TRIMETHOPRIM [Concomitant]
  5. VALGANCICLOVIR HCL [Concomitant]
  6. RANITIDINE [Concomitant]
  7. ARANESP [Concomitant]

REACTIONS (1)
  - KIDNEY TRANSPLANT REJECTION [None]
